FAERS Safety Report 23335743 (Version 2)
Quarter: 2024Q1

REPORT INFORMATION
  Report Type: Other
  Country: GB (occurrence: GB)
  Receive Date: 20231225
  Receipt Date: 20240123
  Transmission Date: 20240410
  Serious: Yes (Hospitalization, Other)
  Sender: FDA-Public Use
  Company Number: GB-MACLEODS PHARMACEUTICALS US LTD-MAC2023044965

PATIENT

DRUGS (10)
  1. LEVOFLOXACIN [Interacting]
     Active Substance: LEVOFLOXACIN
     Indication: Infection
     Dosage: 500 MILLIGRAM, BID (INJECTION) (STOP DATE: 08 NOV 2023)
     Route: 065
     Dates: start: 20231103, end: 20231108
  2. LEVOFLOXACIN [Interacting]
     Active Substance: LEVOFLOXACIN
     Dosage: UNK
     Route: 065
     Dates: start: 20231103, end: 20231208
  3. METHOTREXATE [Interacting]
     Active Substance: METHOTREXATE
     Indication: Central nervous system neoplasm
     Dosage: UNK, (2GM/2/M2) (INFUSION) (1ST CYCLE)
     Route: 042
     Dates: start: 20230912, end: 20231108
  4. METHOTREXATE [Interacting]
     Active Substance: METHOTREXATE
     Indication: Central nervous system lymphoma
     Dosage: UNK (SECOND CYCLE), 2GM/2/M2
     Route: 065
     Dates: start: 20231011
  5. METHOTREXATE [Interacting]
     Active Substance: METHOTREXATE
     Dosage: UNK, 2GM/2/M2) (INFUSION) (THIRD CYCLE)
     Route: 042
     Dates: start: 20231108, end: 20231108
  6. ACYCLOVIR [Concomitant]
     Active Substance: ACYCLOVIR
     Indication: Antiviral prophylaxis
     Dosage: UNK
     Route: 065
  7. APIXABAN [Concomitant]
     Active Substance: APIXABAN
     Indication: Anticoagulant therapy
     Dosage: UNK
     Route: 065
  8. FAMOTIDINE [Concomitant]
     Active Substance: FAMOTIDINE
     Indication: Product used for unknown indication
     Dosage: UNK
     Route: 065
  9. FLUCONAZOLE [Concomitant]
     Active Substance: FLUCONAZOLE
     Indication: Product used for unknown indication
     Dosage: UNK
     Route: 065
  10. FLUDROCORTISONE [Concomitant]
     Active Substance: FLUDROCORTISONE
     Indication: Product used for unknown indication
     Dosage: UNK
     Route: 065

REACTIONS (3)
  - Renal failure [Recovered/Resolved]
  - Acute kidney injury [Unknown]
  - Drug interaction [Unknown]

NARRATIVE: CASE EVENT DATE: 20231110
